FAERS Safety Report 19176288 (Version 1)
Quarter: 2021Q2

REPORT INFORMATION
  Report Type: Spontaneous
  Country: US (occurrence: US)
  Receive Date: 20210424
  Receipt Date: 20210424
  Transmission Date: 20210717
  Serious: Yes (Hospitalization, Other)
  Sender: FDA-Public Use
  Company Number: US-MACLEODS PHARMACEUTICALS US LTD-MAC2021030912

PATIENT

DRUGS (3)
  1. ACETAMINOPHEN. [Concomitant]
     Active Substance: ACETAMINOPHEN
     Indication: PRODUCT USED FOR UNKNOWN INDICATION
     Dosage: UNK UNK, QD, LOW DOSES, {1 G DAILY
     Route: 065
  2. DULOXETINE 30 MG [Suspect]
     Active Substance: DULOXETINE
     Indication: PRODUCT USED FOR UNKNOWN INDICATION
     Dosage: 30 MILLIGRAM, QD
     Route: 065
  3. CLONAZEPAM. [Suspect]
     Active Substance: CLONAZEPAM
     Indication: PRODUCT USED FOR UNKNOWN INDICATION
     Dosage: UNK, LONG TERM
     Route: 065

REACTIONS (6)
  - Non-alcoholic steatohepatitis [Recovering/Resolving]
  - Hepatic failure [Recovering/Resolving]
  - Hepatic necrosis [Recovering/Resolving]
  - Drug-induced liver injury [Recovering/Resolving]
  - Hepatic fibrosis [Recovering/Resolving]
  - Thrombocytopenia [Unknown]
